FAERS Safety Report 24184968 (Version 3)
Quarter: 2024Q3

REPORT INFORMATION
  Report Type: Spontaneous
  Country: US (occurrence: US)
  Receive Date: 20240807
  Receipt Date: 20240829
  Transmission Date: 20241016
  Serious: Yes (Death, Hospitalization, Other)
  Sender: ARGENX BVBA
  Company Number: US-ARGENX-2024-ARGX-US006164

PATIENT

DRUGS (3)
  1. VYVGART [Suspect]
     Active Substance: EFGARTIGIMOD ALFA-FCAB
     Indication: Myasthenia gravis
     Dosage: 4 WEEKS ON AND 4 WEEKS OFF
     Route: 042
     Dates: start: 20231207
  2. MESTINON [Concomitant]
     Active Substance: PYRIDOSTIGMINE BROMIDE
     Indication: Myasthenia gravis
     Dosage: 60 MG, DAILY
     Route: 048
  3. PREDNISONE [Concomitant]
     Active Substance: PREDNISONE
     Indication: Myasthenia gravis
     Dosage: 20 MG, DAILY
     Route: 048

REACTIONS (2)
  - Myasthenia gravis [Fatal]
  - Drug ineffective [Unknown]

NARRATIVE: CASE EVENT DATE: 20240731
